FAERS Safety Report 25748021 (Version 3)
Quarter: 2025Q4

REPORT INFORMATION
  Report Type: Spontaneous
  Country: US (occurrence: US)
  Receive Date: 20250901
  Receipt Date: 20251202
  Transmission Date: 20260117
  Serious: Yes (Death)
  Sender: BIOGEN
  Company Number: US-BIOGEN-2025BI01322609

PATIENT
  Sex: Female

DRUGS (8)
  1. VUMERITY [Suspect]
     Active Substance: DIROXIMEL FUMARATE
     Indication: Multiple sclerosis
  2. VUMERITY [Suspect]
     Active Substance: DIROXIMEL FUMARATE
  3. VUMERITY [Suspect]
     Active Substance: DIROXIMEL FUMARATE
     Dosage: DOSAGE TEXT:TAKE 2 CAPSULES (462MG) BY MOUTH TWICE DAILY
  4. D3-5 [Concomitant]
     Indication: Product used for unknown indication
  5. VITAMIN B12 [Concomitant]
     Active Substance: CYANOCOBALAMIN
     Indication: Product used for unknown indication
  6. FOLIC ACID [Concomitant]
     Active Substance: FOLIC ACID
     Indication: Product used for unknown indication
  7. ESTRADIOL [Concomitant]
     Active Substance: ESTRADIOL
     Indication: Product used for unknown indication
     Dosage: DOSAGE TEXT:PATCH
  8. PROGESTERONE [Concomitant]
     Active Substance: PROGESTERONE
     Indication: Product used for unknown indication

REACTIONS (2)
  - Breast cancer metastatic [Fatal]
  - Hypervolaemia [Fatal]

NARRATIVE: CASE EVENT DATE: 20250824
